FAERS Safety Report 8946812 (Version 1)
Quarter: 2012Q4

REPORT INFORMATION
  Report Type: 
  Country: US (occurrence: US)
  Receive Date: 20121205
  Receipt Date: 20121205
  Transmission Date: 20130627
  Serious: Yes (Death, Hospitalization)
  Sender: FDA-Public Use
  Company Number: US-GLAXOSMITHKLINE-A0886885A

PATIENT
  Sex: Male
  Weight: 114.1 kg

DRUGS (9)
  1. AVANDIA [Suspect]
     Indication: DIABETES MELLITUS
     Dosage: 4MG Per day
     Route: 048
     Dates: start: 2003, end: 20100318
  2. ZOCOR [Concomitant]
  3. MAVIK [Concomitant]
  4. ASPIRIN [Concomitant]
  5. NIASPAN [Concomitant]
  6. IMDUR [Concomitant]
  7. VYTORIN [Concomitant]
  8. ATENOLOL [Concomitant]
  9. COREG [Concomitant]

REACTIONS (10)
  - Death [Fatal]
  - Supraventricular tachycardia [Unknown]
  - Ischaemic cardiomyopathy [Unknown]
  - Aortic aneurysm [Unknown]
  - Atrioventricular block [Unknown]
  - Renal failure chronic [Unknown]
  - Cardiac failure congestive [Unknown]
  - Vascular graft [Unknown]
  - Implantable defibrillator insertion [Unknown]
  - Cardiac pacemaker insertion [Unknown]
